FAERS Safety Report 8018457-6 (Version None)
Quarter: 2012Q1

REPORT INFORMATION
  Report Type: 
  Country: None (occurrence: None)
  Receive Date: 20120103
  Receipt Date: 20111222
  Transmission Date: 20120608
  Serious: Yes (Other)
  Sender: FDA-Public Use
  Company Number: US-BAYER-2011-040260

PATIENT
  Age: 27 Year
  Sex: Female
  Weight: 68.027 kg

DRUGS (10)
  1. YASMIN [Suspect]
     Indication: PREMENSTRUAL SYNDROME
  2. YASMIN [Suspect]
  3. YASMIN [Suspect]
     Indication: MIGRAINE
  4. FIORICET [Concomitant]
     Indication: MIGRAINE
     Dosage: UNK UNK, PRN
  5. YASMIN [Suspect]
     Indication: CONTRACEPTION
     Dosage: UNK
     Dates: start: 20030801, end: 20080501
  6. KLONOPIN [Concomitant]
     Indication: ANXIETY
     Dosage: UNK UNK, PRN
     Dates: start: 20060801, end: 20081201
  7. KLONOPIN [Concomitant]
     Indication: ANGER
  8. NAPROXEN [Concomitant]
     Indication: PAIN
     Dosage: UNK UNK, BID
     Dates: start: 20031101, end: 20100201
  9. NAPROXEN [Concomitant]
     Indication: HEADACHE
  10. YASMIN [Suspect]
     Indication: ANXIETY

REACTIONS (10)
  - MUSCULOSKELETAL PAIN [None]
  - EMOTIONAL DISTRESS [None]
  - CHOLECYSTITIS CHRONIC [None]
  - CHOLELITHIASIS [None]
  - ABDOMINAL PAIN UPPER [None]
  - ANXIETY [None]
  - PAIN [None]
  - CARDIAC DISORDER [None]
  - BACK PAIN [None]
  - FOOD INTOLERANCE [None]
